FAERS Safety Report 8842405 (Version 1)
Quarter: 2012Q4

REPORT INFORMATION
  Report Type: Spontaneous
  Country: US (occurrence: None)
  Receive Date: 20121015
  Receipt Date: 20121015
  Transmission Date: 20130627
  Serious: Yes (Other)
  Sender: FDA-Public Use
  Company Number: None

PATIENT
  Age: 40 Year
  Sex: Female
  Weight: 63.5 kg

DRUGS (1)
  1. SINGULAIR [Suspect]
     Indication: PNEUMONIA
     Route: 048
     Dates: start: 20121001, end: 20121010

REACTIONS (8)
  - Dysphonia [None]
  - Oedema peripheral [None]
  - Oedema peripheral [None]
  - Oropharyngeal pain [None]
  - Paraesthesia [None]
  - Hypoaesthesia [None]
  - Pain in extremity [None]
  - Pain in extremity [None]
